FAERS Safety Report 7620614-5 (Version None)
Quarter: 2011Q3

REPORT INFORMATION
  Report Type: 
  Country: None (occurrence: None)
  Receive Date: 20110719
  Receipt Date: 20110706
  Transmission Date: 20111222
  Serious: Yes (Other)
  Sender: FDA-Public Use
  Company Number: RS-UCBSA-8042170

PATIENT
  Sex: Female
  Weight: 62 kg

DRUGS (5)
  1. ETAMBUTOL CHLORIDE [Concomitant]
     Dates: start: 20081015
  2. DICLOFENAC DUO [Concomitant]
     Route: 048
  3. CDP870 [Suspect]
     Indication: RHEUMATOID ARTHRITIS
     Route: 058
     Dates: start: 20060426, end: 20090115
  4. PRONISON [Concomitant]
     Route: 048
     Dates: start: 20050101
  5. METHOTREXATE [Concomitant]

REACTIONS (1)
  - SQUAMOUS CELL CARCINOMA OF THE CERVIX [None]
